FAERS Safety Report 5488338-0 (Version None)
Quarter: 2007Q4

REPORT INFORMATION
  Report Type: 
  Country: None (occurrence: None)
  Receive Date: 20071017
  Receipt Date: 20071016
  Transmission Date: 20080405
  Serious: Yes (Other)
  Sender: FDA-Public Use
  Company Number: A0688004A

PATIENT
  Age: 64 Year
  Sex: Male

DRUGS (2)
  1. AVODART [Suspect]
     Dosage: .5MG PER DAY
     Route: 048
     Dates: start: 20071005, end: 20071013
  2. NO CONCURRENT MEDICATION [Concomitant]

REACTIONS (5)
  - FALL [None]
  - ILLUSION [None]
  - LOSS OF CONSCIOUSNESS [None]
  - NAUSEA [None]
  - THERMAL BURN [None]
